FAERS Safety Report 4558129-3 (Version None)
Quarter: 2005Q1

REPORT INFORMATION
  Report Type: 
  Country: None (occurrence: None)
  Receive Date: 20050121
  Receipt Date: 20041117
  Transmission Date: 20050727
  Serious: Yes (Hospitalization, Other)
  Sender: FDA-Public Use
  Company Number: 200413818JP

PATIENT
  Age: 1 Year
  Sex: Female
  Weight: 11.6 kg

DRUGS (9)
  1. CLAFORAN [Suspect]
     Indication: MENINGITIS HAEMOPHILUS
     Route: 042
     Dates: start: 20040202, end: 20040223
  2. PHENOBARBITAL [Suspect]
     Indication: CONVULSION PROPHYLAXIS
     Route: 048
     Dates: start: 20040213, end: 20040223
  3. LASIX [Suspect]
     Indication: CARDIAC FAILURE
     Route: 048
     Dates: start: 20040216, end: 20040223
  4. ALDACTONE [Suspect]
     Indication: CARDIAC FAILURE
     Route: 048
     Dates: start: 20040216, end: 20040223
  5. PAPM/BP (PANIPENEM/BETAMIPRON) [Concomitant]
  6. CORTICOSTEROIDS [Concomitant]
  7. ANTITHROMBOTIC AGENTS [Concomitant]
  8. I.V. SOLUTIONS [Concomitant]
  9. CARDIOVASCULAR SYSTEM DRUGS [Concomitant]

REACTIONS (8)
  - CARDIAC FAILURE [None]
  - DISEASE RECURRENCE [None]
  - DRUG ERUPTION [None]
  - ENDOCARDITIS [None]
  - EXCORIATION [None]
  - MENINGITIS [None]
  - RASH [None]
  - RHABDOMYOLYSIS [None]
